FAERS Safety Report 13792162 (Version 1)
Quarter: 2017Q3

REPORT INFORMATION
  Report Type: Spontaneous
  Country: US (occurrence: US)
  Receive Date: 20170725
  Receipt Date: 20170725
  Transmission Date: 20171127
  Serious: No
  Sender: FDA-Public Use
  Company Number: US-ROCHE-1217822

PATIENT
  Sex: Female
  Weight: 74.91 kg

DRUGS (21)
  1. TORADOL [Suspect]
     Active Substance: KETOROLAC TROMETHAMINE
     Indication: PRODUCT USED FOR UNKNOWN INDICATION
     Route: 065
  2. ERYTHROCIN [Concomitant]
     Active Substance: ERYTHROMYCIN LACTOBIONATE
  3. TROVAN [Concomitant]
     Active Substance: TROVAFLOXACIN MESYLATE
  4. THORAZINE (UNITED STATES) [Concomitant]
  5. SECONAL [Concomitant]
     Active Substance: SECOBARBITAL
  6. TALWIN [Concomitant]
     Active Substance: PENTAZOCINE LACTATE
  7. CODEINE [Concomitant]
     Active Substance: CODEINE
  8. VICODIN [Concomitant]
     Active Substance: ACETAMINOPHEN\HYDROCODONE BITARTRATE
  9. TINCTURE OF BENZOIN [Concomitant]
  10. NIACIN. [Concomitant]
     Active Substance: NIACIN
  11. PERCOCET [Concomitant]
     Active Substance: ACETAMINOPHEN\OXYCODONE HYDROCHLORIDE
  12. KENALOG [Concomitant]
     Active Substance: TRIAMCINOLONE ACETONIDE
  13. VIOXX [Concomitant]
     Active Substance: ROFECOXIB
  14. NEMBUTAL SODIUM [Concomitant]
     Active Substance: PENTOBARBITAL SODIUM
  15. TEGRETOL [Concomitant]
     Active Substance: CARBAMAZEPINE
  16. ROCEPHIN [Suspect]
     Active Substance: CEFTRIAXONE SODIUM
     Indication: PRODUCT USED FOR UNKNOWN INDICATION
     Route: 065
  17. DILANTIN [Concomitant]
     Active Substance: PHENYTOIN
  18. ROCEPHIN [Concomitant]
     Active Substance: CEFTRIAXONE SODIUM
  19. BUMEX [Concomitant]
     Active Substance: BUMETANIDE
  20. DARVOCET [Concomitant]
     Active Substance: ACETAMINOPHEN\PROPOXYPHENE HYDROCHLORIDE
  21. ANSPOR [Concomitant]
     Active Substance: CEPHRADINE

REACTIONS (3)
  - Vomiting [Unknown]
  - Nausea [Unknown]
  - Urticaria [Unknown]
